FAERS Safety Report 6917458-6 (Version None)
Quarter: 2010Q3

REPORT INFORMATION
  Report Type: 
  Country: None (occurrence: None)
  Receive Date: 20100810
  Receipt Date: 20100730
  Transmission Date: 20110219
  Serious: Yes (Other)
  Sender: FDA-Public Use
  Company Number: PHHY2010US50959

PATIENT
  Sex: Female

DRUGS (1)
  1. SANDIMMUNE [Suspect]
     Dosage: UNK
     Dates: start: 19820101, end: 19840101

REACTIONS (2)
  - KIDNEY TRANSPLANT REJECTION [None]
  - RENAL HAEMATOMA [None]
